FAERS Safety Report 6744267-3 (Version None)
Quarter: 2010Q2

REPORT INFORMATION
  Report Type: 
  Country: None (occurrence: None)
  Receive Date: 20100527
  Receipt Date: 20100518
  Transmission Date: 20101027
  Serious: Yes (Hospitalization)
  Sender: FDA-Public Use
  Company Number: CHPA2010GB08983

PATIENT
  Age: 14 Year
  Sex: Male

DRUGS (1)
  1. HYOSCINE (NCH) [Suspect]
     Indication: SALIVARY HYPERSECRETION
     Route: 062

REACTIONS (19)
  - ACUTE HEPATIC FAILURE [None]
  - AGITATION [None]
  - ANTICHOLINERGIC SYNDROME [None]
  - BLOOD CREATININE INCREASED [None]
  - COAGULOPATHY [None]
  - HYPERTHERMIA [None]
  - HYPOTENSION [None]
  - MENTAL DISORDER [None]
  - MUCOSAL DRYNESS [None]
  - MULTI-ORGAN FAILURE [None]
  - MYDRIASIS [None]
  - MYOGLOBINURIA [None]
  - PYREXIA [None]
  - RENAL FAILURE [None]
  - RHABDOMYOLYSIS [None]
  - SOMNOLENCE [None]
  - TACHYCARDIA [None]
  - UNRESPONSIVE TO STIMULI [None]
  - URINE OUTPUT DECREASED [None]
